FAERS Safety Report 7011924-3 (Version None)
Quarter: 2010Q3

REPORT INFORMATION
  Report Type: 
  Country: None (occurrence: None)
  Receive Date: 20100924
  Receipt Date: 20100915
  Transmission Date: 20110219
  Serious: Yes (Hospitalization)
  Sender: FDA-Public Use
  Company Number: US-BIOGENIDEC-2010BI032594

PATIENT
  Age: 49 Year
  Sex: Female

DRUGS (2)
  1. AVONEX [Suspect]
     Indication: MULTIPLE SCLEROSIS
     Route: 030
  2. AVONEX [Suspect]
     Route: 030
     Dates: start: 20090811

REACTIONS (6)
  - CATHETER PLACEMENT [None]
  - COLOSTOMY [None]
  - DECUBITUS ULCER [None]
  - DRUG DELIVERY DEVICE IMPLANTATION [None]
  - URINARY TRACT INFECTION [None]
  - UTERINE INFECTION [None]
